FAERS Safety Report 5852792-2 (Version None)
Quarter: 2008Q3

REPORT INFORMATION
  Report Type: 
  Country: None (occurrence: None)
  Receive Date: 20080821
  Receipt Date: 20080731
  Transmission Date: 20090109
  Serious: Yes (Hospitalization)
  Sender: FDA-Public Use
  Company Number: ES-MERCK-0808ESP00001

PATIENT
  Age: 73 Year
  Sex: Female

DRUGS (12)
  1. ZOCOR [Suspect]
     Route: 048
     Dates: start: 20060301, end: 20070801
  2. ACENOCOUMAROL [Concomitant]
     Route: 065
  3. ASPIRIN [Concomitant]
     Route: 065
  4. COZAAR [Suspect]
     Route: 048
  5. CARVEDILOL [Concomitant]
     Route: 065
  6. INSULIN [Concomitant]
     Indication: TYPE 2 DIABETES MELLITUS
     Route: 058
  7. ALPRAZOLAM [Concomitant]
     Route: 065
  8. OMEPRAZOLE [Concomitant]
     Route: 065
  9. LACTITOL [Concomitant]
     Route: 065
  10. AMIODARONE [Suspect]
     Indication: ATRIAL FIBRILLATION
     Route: 065
     Dates: start: 20070701, end: 20070801
  11. SPIRONOLACTONE [Suspect]
     Route: 065
  12. FUROSEMIDE [Suspect]
     Route: 065

REACTIONS (6)
  - CARDIAC FAILURE [None]
  - DRUG INTERACTION [None]
  - HYPERKALAEMIA [None]
  - PANCREATITIS [None]
  - RENAL FAILURE ACUTE [None]
  - RHABDOMYOLYSIS [None]
